FAERS Safety Report 4874253-X (Version None)
Quarter: 2006Q1

REPORT INFORMATION
  Report Type: 
  Country: None (occurrence: None)
  Receive Date: 20060106
  Receipt Date: 20050105
  Transmission Date: 20060701
  Serious: Yes (Hospitalization)
  Sender: FDA-Public Use
  Company Number: US-MERCK-0501USA00568

PATIENT
  Age: 70 Year
  Sex: Female
  Weight: 92 kg

DRUGS (1)
  1. VIOXX [Suspect]
     Indication: ARTHRITIS
     Route: 048
     Dates: start: 20011017, end: 20040817

REACTIONS (4)
  - ARTHROPATHY [None]
  - EMOTIONAL DISORDER [None]
  - EYE DISORDER [None]
  - TRANSIENT ISCHAEMIC ATTACK [None]
